FAERS Safety Report 12661847 (Version 4)
Quarter: 2016Q4

REPORT INFORMATION
  Report Type: Spontaneous
  Country: CN (occurrence: CN)
  Receive Date: 20160817
  Receipt Date: 20161024
  Transmission Date: 20170207
  Serious: Yes (Other)
  Sender: FDA-Public Use
  Company Number: CN-PFIZER INC-2016388324

PATIENT
  Age: 76 Year
  Sex: Female
  Weight: 46 kg

DRUGS (17)
  1. TAKEPRON [Suspect]
     Active Substance: LANSOPRAZOLE
     Indication: OESOPHAGEAL SPASM
     Dosage: 180 UNK, UNK
     Route: 048
  2. CRAVIT [Suspect]
     Active Substance: LEVOFLOXACIN
     Indication: BRONCHITIS
     Dosage: 2 G, UNK
  3. COLCHICINE. [Concomitant]
     Active Substance: COLCHICINE
     Dosage: 0.5 MG, TID
     Route: 048
  4. CRAVIT [Suspect]
     Active Substance: LEVOFLOXACIN
     Indication: GLOMERULONEPHRITIS CHRONIC
     Dosage: 0.3 G, QD
     Route: 041
     Dates: start: 20160419, end: 20160425
  5. DEXAMETHASONE. [Concomitant]
     Active Substance: DEXAMETHASONE
     Dosage: 5 MG, UNK
     Route: 042
  6. LIPITOR [Suspect]
     Active Substance: ATORVASTATIN CALCIUM
     Indication: CORONARY ARTERY DISEASE
     Dosage: 10 MG, QD
     Route: 048
     Dates: start: 20160420, end: 20160429
  7. TAKEPRON [Suspect]
     Active Substance: LANSOPRAZOLE
     Indication: GASTROOESOPHAGEAL REFLUX DISEASE
     Dosage: 30 MG, QD
     Route: 048
     Dates: start: 20160420, end: 20160429
  8. SODIUM CHLORIDE. [Concomitant]
     Active Substance: SODIUM CHLORIDE
     Indication: GLOMERULONEPHRITIS CHRONIC
     Dosage: 100 ML, 2X/DAY
     Route: 041
     Dates: start: 20160423, end: 20160428
  9. SULPERAZON [Concomitant]
     Active Substance: CEFOPERAZONE SODIUM\SULBACTAM SODIUM
     Indication: BRONCHITIS
  10. SODIUM CHLORIDE. [Concomitant]
     Active Substance: SODIUM CHLORIDE
     Indication: MEDICATION DILUTION
     Dosage: UNK, QD
     Route: 041
     Dates: start: 20160419
  11. AMLODIPINE W/VALSARTAN [Concomitant]
     Active Substance: AMLODIPINE\VALSARTAN
     Indication: HYPERTENSION
     Dosage: 1 DF, 1X/DAY
     Route: 048
     Dates: start: 20160419, end: 20160429
  12. SULPERAZON [Concomitant]
     Active Substance: CEFOPERAZONE SODIUM\SULBACTAM SODIUM
     Indication: GLOMERULONEPHRITIS CHRONIC
     Dosage: 3 G, 2X/DAY
     Route: 041
     Dates: start: 20160423, end: 20160428
  13. SODIUM CHLORIDE. [Concomitant]
     Active Substance: SODIUM CHLORIDE
     Indication: BRONCHITIS
  14. CLOPIDOGREL HYDROGEN SULFATE [Concomitant]
     Active Substance: CLOPIDOGREL BISULFATE
     Indication: PLATELET DISORDER
     Dosage: 50 MG, 1X/DAY
     Route: 048
     Dates: start: 20160420, end: 20160429
  15. BENZBROMARONE [Concomitant]
     Active Substance: BENZBROMARONE
     Dosage: 50 MG, UNK
     Route: 048
  16. CELECOXIB. [Concomitant]
     Active Substance: CELECOXIB
     Dosage: 0.2 G, BID
     Route: 048
  17. TAKEPRON [Suspect]
     Active Substance: LANSOPRAZOLE
     Indication: ANTACID THERAPY

REACTIONS (1)
  - Gout [Recovering/Resolving]

NARRATIVE: CASE EVENT DATE: 20160425
